FAERS Safety Report 21568355 (Version 8)
Quarter: 2024Q2

REPORT INFORMATION
  Report Type: Spontaneous
  Country: US (occurrence: US)
  Receive Date: 20221108
  Receipt Date: 20240530
  Transmission Date: 20240716
  Serious: Yes (Other)
  Sender: FDA-Public Use
  Company Number: US-BRISTOL-MYERS SQUIBB COMPANY-2022-129781

PATIENT
  Age: 69 Year
  Sex: Female

DRUGS (3)
  1. POMALYST [Suspect]
     Active Substance: POMALIDOMIDE
     Indication: Plasma cell myeloma
     Dosage: FREQUENCY: DAILY ON DAYS 1-21 FOLLOWED BY 7 DAYS OFF?TAKE 1 CAPSULE BY MOUTH EVERY DAY ON DAYS 1-21
     Route: 048
     Dates: start: 20220305
  2. POMALYST [Suspect]
     Active Substance: POMALIDOMIDE
     Dosage: FREQUENCY: DAILY ON DAYS 1-21 FOLLOWED BY 7 DAYS OFF/ TAKE 1 CAPSULE BY MOUTH EVERY DAY ON DAYS 1-21
     Route: 048
     Dates: start: 20220305
  3. POMALYST [Suspect]
     Active Substance: POMALIDOMIDE
     Dosage: TAKE 1 CAPSULE BY MOUTH DAILY ON DAYS 1-21, THEN 7 DAYS OFF
     Route: 048

REACTIONS (12)
  - Fatigue [Not Recovered/Not Resolved]
  - Neuropathy peripheral [Not Recovered/Not Resolved]
  - Dyspnoea exertional [Not Recovered/Not Resolved]
  - Rhinorrhoea [Not Recovered/Not Resolved]
  - Facial pain [Not Recovered/Not Resolved]
  - Asthenia [Unknown]
  - Illness [Not Recovered/Not Resolved]
  - Hepatitis [Not Recovered/Not Resolved]
  - Tooth disorder [Recovering/Resolving]
  - Impaired healing [Recovering/Resolving]
  - Oedema peripheral [Not Recovered/Not Resolved]
  - Depression [Recovered/Resolved]

NARRATIVE: CASE EVENT DATE: 20230101
